FAERS Safety Report 21915361 (Version 1)
Quarter: 2023Q1

REPORT INFORMATION
  Report Type: Spontaneous
  Country: CN (occurrence: CN)
  Receive Date: 20230126
  Receipt Date: 20230126
  Transmission Date: 20230418
  Serious: Yes (Hospitalization)
  Sender: FDA-Public Use
  Company Number: CN-BoehringerIngelheim-2023-BI-214432

PATIENT
  Age: 70 Year
  Sex: Male
  Weight: 71 kg

DRUGS (4)
  1. ALTEPLASE [Suspect]
     Active Substance: ALTEPLASE
     Indication: Cerebral infarction
     Dosage: INTRAVENOUS BOLUS
     Route: 040
     Dates: start: 20230109, end: 20230109
  2. ALTEPLASE [Suspect]
     Active Substance: ALTEPLASE
     Dosage: MICROPUMP
     Route: 042
     Dates: start: 20230109, end: 20230109
  3. KALLIDINOGENASE [Suspect]
     Active Substance: KALLIDINOGENASE
     Indication: Cerebral infarction
     Route: 042
     Dates: start: 20230109, end: 20230113
  4. TIROFIBAN HYDROCHLORIDE [Suspect]
     Active Substance: TIROFIBAN HYDROCHLORIDE
     Indication: Cerebral infarction
     Route: 042
     Dates: start: 20230109, end: 20230112

REACTIONS (2)
  - Cerebral haemorrhage [Recovering/Resolving]
  - Brain oedema [Recovering/Resolving]

NARRATIVE: CASE EVENT DATE: 20230112
